FAERS Safety Report 7904923-8 (Version None)
Quarter: 2011Q4

REPORT INFORMATION
  Report Type: 
  Country: None (occurrence: None)
  Receive Date: 20111109
  Receipt Date: 20111101
  Transmission Date: 20120403
  Serious: Yes (Hospitalization)
  Sender: FDA-Public Use
  Company Number: PHEH2009US17173

PATIENT
  Sex: Female

DRUGS (3)
  1. EXJADE [Suspect]
     Indication: IRON OVERLOAD
     Dosage: 1500 MG, QD
     Route: 048
  2. EXJADE [Suspect]
     Dosage: 1000 MG, DAILY
     Route: 048
  3. EXJADE [Suspect]
     Dosage: 500 MG, DAILY
     Route: 048

REACTIONS (4)
  - BLOOD IRON INCREASED [None]
  - BACK PAIN [None]
  - MALAISE [None]
  - DRUG INTOLERANCE [None]
